FAERS Safety Report 20095218 (Version 2)
Quarter: 2022Q1

REPORT INFORMATION
  Report Type: Spontaneous
  Country: CA (occurrence: CA)
  Receive Date: 20211122
  Receipt Date: 20220107
  Transmission Date: 20220424
  Serious: Yes (Other)
  Sender: FDA-Public Use
  Company Number: CA-CELLTRION INC.-2021CA015737

PATIENT

DRUGS (1)
  1. INFLECTRA [Suspect]
     Active Substance: INFLIXIMAB-DYYB
     Indication: Crohn^s disease
     Dosage: 5 MG/KG, 0, 2, 6 AND THEN EVERY 8 WEEKS
     Route: 042
     Dates: start: 20210615

REACTIONS (9)
  - Uveitis [Unknown]
  - Anal fistula [Unknown]
  - Arthralgia [Unknown]
  - Arthritis [Unknown]
  - Condition aggravated [Unknown]
  - Iritis [Unknown]
  - Mucocutaneous disorder [Unknown]
  - Pyrexia [Unknown]
  - Fistula [Unknown]

NARRATIVE: CASE EVENT DATE: 20210101
